FAERS Safety Report 21483486 (Version 1)
Quarter: 2022Q4

REPORT INFORMATION
  Report Type: Spontaneous
  Country: BR (occurrence: BR)
  Receive Date: 20221020
  Receipt Date: 20221020
  Transmission Date: 20230113
  Serious: Yes (Death, Life-Threatening, Hospitalization, Other)
  Sender: FDA-Public Use
  Company Number: BR-JNJFOC-20220956917

PATIENT
  Sex: Female
  Weight: 58 kg

DRUGS (13)
  1. INVEGA SUSTENNA [Suspect]
     Active Substance: PALIPERIDONE PALMITATE
     Indication: Schizoaffective disorder
     Route: 030
  2. INVEGA SUSTENNA [Suspect]
     Active Substance: PALIPERIDONE PALMITATE
     Route: 030
  3. INVEGA SUSTENNA [Suspect]
     Active Substance: PALIPERIDONE PALMITATE
     Dosage: THIRD DOSE
     Route: 030
  4. RISPERIDONE [Suspect]
     Active Substance: RISPERIDONE
     Indication: Schizoaffective disorder
     Route: 065
  5. HALOPERIDOL DECANOATE [Suspect]
     Active Substance: HALOPERIDOL DECANOATE
     Indication: Schizoaffective disorder
     Route: 030
  6. LITHIUM [Concomitant]
     Active Substance: LITHIUM
     Indication: Depression
     Route: 065
  7. QUETIAPINE [Concomitant]
     Active Substance: QUETIAPINE
  8. CLONAZEPAM [Concomitant]
     Active Substance: CLONAZEPAM
     Indication: Anxiety
     Dosage: 2 TO 3 MG/DAY
     Route: 048
  9. CLONAZEPAM [Concomitant]
     Active Substance: CLONAZEPAM
     Indication: Catatonia
  10. VENLAFAXINE [Concomitant]
     Active Substance: VENLAFAXINE HYDROCHLORIDE
     Indication: Antidepressant therapy
  11. LITHIUM CARBONATE [Concomitant]
     Active Substance: LITHIUM CARBONATE
     Indication: Drug therapy
     Route: 048
  12. AMOXICILLIN [Concomitant]
     Active Substance: AMOXICILLIN
     Indication: Skin infection
     Route: 048
  13. PREDNISOLONE [Concomitant]
     Active Substance: PREDNISOLONE
     Indication: Dermatitis
     Route: 048

REACTIONS (16)
  - Haemorrhage [Fatal]
  - Neuroleptic malignant syndrome [Unknown]
  - Suicide attempt [Unknown]
  - Seizure [Unknown]
  - Psychotic symptom [Recovering/Resolving]
  - Hospitalisation [Unknown]
  - Tracheostomy [Unknown]
  - Muscle rigidity [Unknown]
  - Muscle spasticity [Unknown]
  - Skin disorder [Unknown]
  - Dysphagia [Unknown]
  - Treatment noncompliance [Unknown]
  - Anxiety [Unknown]
  - Catatonia [Unknown]
  - Tremor [Unknown]
  - Pyrexia [Unknown]

NARRATIVE: CASE EVENT DATE: 20220101
